FAERS Safety Report 10671472 (Version 3)
Quarter: 2015Q3

REPORT INFORMATION
  Report Type: Spontaneous
  Country: FR (occurrence: FR)
  Receive Date: 20141223
  Receipt Date: 20150716
  Transmission Date: 20151125
  Serious: Yes (Hospitalization)
  Sender: FDA-Public Use
  Company Number: FR-NOVOPROD-433368

PATIENT
  Age: 14 Year
  Sex: Male

DRUGS (1)
  1. NORDITROPIN [Suspect]
     Active Substance: SOMATROPIN
     Indication: GROWTH HORMONE DEFICIENCY
     Dosage: 12 MG, QW
     Route: 058
     Dates: start: 201306, end: 20141110

REACTIONS (5)
  - Ischaemic stroke [Recovering/Resolving]
  - Intracranial pressure increased [Recovering/Resolving]
  - Headache [Recovering/Resolving]
  - Vertebral artery dissection [Recovering/Resolving]
  - Cerebellar syndrome [Recovering/Resolving]

NARRATIVE: CASE EVENT DATE: 20141111
